FAERS Safety Report 8145278-6 (Version None)
Quarter: 2012Q1

REPORT INFORMATION
  Report Type: 
  Country: None (occurrence: None)
  Receive Date: 20120217
  Receipt Date: 20120209
  Transmission Date: 20120608
  Serious: Yes (Other)
  Sender: FDA-Public Use
  Company Number: PHHY2011GB87152

PATIENT
  Age: 20 Month
  Sex: Male

DRUGS (6)
  1. FLUCONAZOLE [Interacting]
     Dosage: 72 NG/ML
     Route: 033
  2. FLUCONAZOLE [Interacting]
     Dosage: 3 MG/KG
     Route: 042
  3. FLUCONAZOLE [Interacting]
     Dosage: 6 MG/KG
     Route: 042
  4. TACROLIMUS [Interacting]
     Indication: IMMUNOSUPPRESSION
     Dosage: 0.4 MG/KG/DAY
  5. FLUCONAZOLE [Suspect]
     Indication: FUNGAL PERITONITIS
     Dosage: 3 MG/KG
     Route: 048
  6. FLUCONAZOLE [Interacting]
     Dosage: 12 MG/KG
     Route: 042

REACTIONS (8)
  - ASCITES [None]
  - DEPRESSED LEVEL OF CONSCIOUSNESS [None]
  - COMPLICATIONS OF TRANSPLANTED KIDNEY [None]
  - POTENTIATING DRUG INTERACTION [None]
  - STRABISMUS [None]
  - SEPTIC SHOCK [None]
  - GENERAL PHYSICAL HEALTH DETERIORATION [None]
  - DRUG LEVEL INCREASED [None]
